FAERS Safety Report 9201109 (Version 3)
Quarter: 2014Q1

REPORT INFORMATION
  Report Type: Spontaneous
  Country: BE (occurrence: BE)
  Receive Date: 20130401
  Receipt Date: 20140127
  Transmission Date: 20141002
  Serious: Yes (Other)
  Sender: FDA-Public Use
  Company Number: BE-JNJFOC-20130316446

PATIENT
  Age: 34 Year
  Sex: Female

DRUGS (2)
  1. REMICADE [Suspect]
     Indication: CROHN^S DISEASE
     Dosage: DURATION: SEVERAL MONTHS
     Route: 042
     Dates: start: 2003
  2. AZATHIOPRINE [Suspect]
     Indication: CROHN^S DISEASE
     Dosage: DURATION: SEVERAL MONTHS
     Route: 065
     Dates: start: 2003, end: 2012

REACTIONS (1)
  - Basal cell carcinoma [Recovered/Resolved]
